FAERS Safety Report 4587365-5 (Version None)
Quarter: 2005Q1

REPORT INFORMATION
  Report Type: 
  Country: None (occurrence: None)
  Receive Date: 20050216
  Receipt Date: 20050203
  Transmission Date: 20050727
  Serious: Yes (Other)
  Sender: FDA-Public Use
  Company Number: US-JNJFOC-20041006075

PATIENT
  Sex: Female
  Weight: 57.15 kg

DRUGS (1)
  1. REMICADE [Suspect]
     Indication: RHEUMATOID ARTHRITIS
     Dosage: 5 VIALS
     Route: 042

REACTIONS (5)
  - ANKLE FRACTURE [None]
  - FALL [None]
  - LOSS OF CONSCIOUSNESS [None]
  - RHEUMATOID ARTHRITIS [None]
  - SYNCOPE [None]
